FAERS Safety Report 18487849 (Version 1)
Quarter: 2020Q4

REPORT INFORMATION
  Report Type: Spontaneous
  Country: US (occurrence: US)
  Receive Date: 20201111
  Receipt Date: 20201111
  Transmission Date: 20210114
  Serious: Yes (Disabling, Other)
  Sender: FDA-Public Use
  Company Number: US-SA-2020SA313539

PATIENT

DRUGS (1)
  1. ZANTAC 75 [Suspect]
     Active Substance: RANITIDINE HYDROCHLORIDE
     Indication: CHEST DISCOMFORT
     Dosage: 75 MG, BID
     Dates: start: 2009

REACTIONS (7)
  - Insomnia [Unknown]
  - Discomfort [Unknown]
  - Malaise [Unknown]
  - Chest discomfort [Unknown]
  - Vomiting [Unknown]
  - Throat cancer [Unknown]
  - Musculoskeletal discomfort [Unknown]
